FAERS Safety Report 6968302-2 (Version None)
Quarter: 2010Q3

REPORT INFORMATION
  Report Type: 
  Country: None (occurrence: None)
  Receive Date: 20100907
  Receipt Date: 20100902
  Transmission Date: 20110219
  Serious: Yes (Other)
  Sender: FDA-Public Use
  Company Number: US-JNJFOC-20091206196

PATIENT
  Sex: Female
  Weight: 90.72 kg

DRUGS (5)
  1. LEVAQUIN [Suspect]
     Indication: PNEUMONIA
     Route: 048
     Dates: start: 20091208, end: 20091218
  2. NORVASC [Concomitant]
     Indication: HYPERTENSION
     Route: 048
  3. TRAZODONE HCL [Concomitant]
     Indication: TREMOR
     Route: 048
  4. TRAZODONE HCL [Concomitant]
     Indication: NEURALGIA
     Route: 048
  5. LYRICA [Concomitant]
     Indication: NEURALGIA
     Route: 048

REACTIONS (2)
  - DEEP VEIN THROMBOSIS [None]
  - TENDON PAIN [None]
